FAERS Safety Report 15738276 (Version 3)
Quarter: 2019Q2

REPORT INFORMATION
  Report Type: Report from Study
  Country: None (occurrence: US)
  Receive Date: 20181219
  Receipt Date: 20190621
  Transmission Date: 20190711
  Serious: Yes (Other)
  Sender: FDA-Public Use
  Company Number: US-ABBVIE-18K-163-2409589-00

PATIENT
  Age: 60 Year
  Sex: Female

DRUGS (3)
  1. HUMIRA [Suspect]
     Active Substance: ADALIMUMAB
     Route: 058
  2. HUMIRA [Suspect]
     Active Substance: ADALIMUMAB
     Indication: PSORIASIS
     Route: 058
     Dates: start: 20180615, end: 2018
  3. HUMIRA [Suspect]
     Active Substance: ADALIMUMAB
     Indication: PSORIATIC ARTHROPATHY
     Route: 058
     Dates: start: 2018, end: 201904

REACTIONS (22)
  - Fatigue [Unknown]
  - Frustration tolerance decreased [Recovered/Resolved]
  - Feeling abnormal [Recovered/Resolved]
  - General physical condition abnormal [Recovering/Resolving]
  - Chills [Recovered/Resolved]
  - Nasopharyngitis [Not Recovered/Not Resolved]
  - Ear congestion [Recovered/Resolved]
  - Emotional distress [Recovering/Resolving]
  - Pruritus [Recovering/Resolving]
  - Upper-airway cough syndrome [Not Recovered/Not Resolved]
  - Hiatus hernia [Unknown]
  - Pre-existing condition improved [Unknown]
  - Anger [Recovered/Resolved]
  - Skin irritation [Recovering/Resolving]
  - Therapeutic response unexpected [Unknown]
  - Sinus congestion [Recovered/Resolved]
  - Pain of skin [Recovering/Resolving]
  - Therapeutic product effect incomplete [Unknown]
  - Myalgia [Recovered/Resolved]
  - Psoriasis [Unknown]
  - Helplessness [Recovering/Resolving]
  - Vertigo [Recovered/Resolved]

NARRATIVE: CASE EVENT DATE: 2018
